FAERS Safety Report 7259352-X (Version None)
Quarter: 2011Q1

REPORT INFORMATION
  Report Type: 
  Country: None (occurrence: None)
  Receive Date: 20110129
  Receipt Date: 20100823
  Transmission Date: 20110831
  Serious: No
  Sender: FDA-Public Use
  Company Number: US-ABBOTT-10P-163-0665784-00

PATIENT
  Age: 52 Year
  Sex: Male

DRUGS (6)
  1. PREDNISONE [Concomitant]
     Indication: RHEUMATOID ARTHRITIS
  2. OXYCODONE [Concomitant]
     Indication: PAIN
  3. HUMIRA [Suspect]
     Indication: RHEUMATOID ARTHRITIS
     Route: 058
     Dates: start: 20100701
  4. GLIPIZIDE [Concomitant]
     Indication: DIABETES MELLITUS
  5. METFORMIN [Concomitant]
     Indication: DIABETES MELLITUS
  6. NAPROXEN [Concomitant]
     Indication: PAIN

REACTIONS (2)
  - ABASIA [None]
  - ARTHRALGIA [None]
